FAERS Safety Report 8396939-5 (Version None)
Quarter: 2012Q2

REPORT INFORMATION
  Report Type: 
  Country: None (occurrence: None)
  Receive Date: 20120530
  Receipt Date: 20120524
  Transmission Date: 20120825
  Serious: Yes (Death, Hospitalization)
  Sender: FDA-Public Use
  Company Number: DE-PFIZER INC-2012040327

PATIENT
  Age: 60 Year
  Sex: Male
  Weight: 69 kg

DRUGS (14)
  1. PANTOPRAZOLE [Concomitant]
  2. CLONIDINE [Concomitant]
  3. AMLODIPINE [Concomitant]
  4. ZOMETA [Concomitant]
     Indication: RENAL CANCER
     Dosage: 4 MG, UNK
  5. DEXAMETHASONE [Concomitant]
     Indication: PREMEDICATION
     Dosage: 4 MG, UNK
  6. CLEMASTINE FUMARATE [Concomitant]
     Indication: PREMEDICATION
     Dosage: 2 MG, UNK
  7. DIPYRONE TAB [Concomitant]
  8. ATACAND [Concomitant]
  9. METOPROLOL TARTRATE AND HYDROCHLOROTHIAZIDE [Concomitant]
  10. MCP ^ALIUD PHARMA^ [Concomitant]
  11. SEROQUEL [Concomitant]
  12. TEMSIROLIMUS [Suspect]
     Indication: RENAL CANCER
     Dosage: 25 MG, UNK
     Route: 042
     Dates: start: 20111020, end: 20120127
  13. LYRICA [Concomitant]
  14. TORSEMIDE [Concomitant]

REACTIONS (5)
  - SEPSIS [None]
  - NAUSEA [None]
  - DECREASED APPETITE [None]
  - DYSPNOEA [None]
  - WEIGHT DECREASED [None]
